FAERS Safety Report 8464647-8 (Version None)
Quarter: 2012Q2

REPORT INFORMATION
  Report Type: 
  Country: None (occurrence: None)
  Receive Date: 20120626
  Receipt Date: 20120614
  Transmission Date: 20120825
  Serious: Yes (Hospitalization, Other)
  Sender: FDA-Public Use
  Company Number: US-JNJFOC-20120508239

PATIENT
  Sex: Female
  Weight: 47.17 kg

DRUGS (10)
  1. HYZAAR [Concomitant]
     Indication: BLOOD PRESSURE
     Dosage: 50/1.5MG
     Route: 048
  2. TOPROL-XL [Concomitant]
     Indication: BLOOD PRESSURE
     Dosage: 25MG/AT NIGHT
     Route: 065
  3. DURAGESIC-100 [Suspect]
     Indication: FIBROMYALGIA
     Route: 062
     Dates: start: 20090101
  4. SKELAXIN [Concomitant]
     Indication: MUSCLE RELAXANT THERAPY
     Route: 048
  5. DURAGESIC-100 [Suspect]
     Route: 062
     Dates: end: 20090101
  6. DURAGESIC-100 [Suspect]
     Route: 062
     Dates: start: 20090101
  7. TIAZAC [Concomitant]
     Indication: CARDIAC DISORDER
     Route: 048
  8. KLOR-CON [Concomitant]
     Indication: NUTRITIONAL SUPPORT
     Route: 048
  9. DURAGESIC-100 [Suspect]
     Indication: PAIN
     Route: 062
  10. DURAGESIC-100 [Suspect]
     Route: 062
     Dates: start: 20040101

REACTIONS (19)
  - LOSS OF CONSCIOUSNESS [None]
  - FALL [None]
  - IMPAIRED HEALING [None]
  - DRUG ADMINISTERED AT INAPPROPRIATE SITE [None]
  - HERPES ZOSTER [None]
  - ABNORMAL LOSS OF WEIGHT [None]
  - SYNCOPE [None]
  - DERMATITIS CONTACT [None]
  - BLOOD PRESSURE FLUCTUATION [None]
  - WRIST FRACTURE [None]
  - PRODUCT QUALITY ISSUE [None]
  - FATIGUE [None]
  - INSOMNIA [None]
  - WRONG TECHNIQUE IN DRUG USAGE PROCESS [None]
  - JAW FRACTURE [None]
  - DIPLOPIA [None]
  - ADVERSE EVENT [None]
  - RIB FRACTURE [None]
  - HYPERHIDROSIS [None]
